FAERS Safety Report 6348606-7 (Version None)
Quarter: 2009Q3

REPORT INFORMATION
  Report Type: 
  Country: None (occurrence: None)
  Receive Date: 20090911
  Receipt Date: 20090904
  Transmission Date: 20100115
  Serious: Yes (Other)
  Sender: FDA-Public Use
  Company Number: US-ROCHE-655230

PATIENT
  Age: 23 Year
  Sex: Male

DRUGS (2)
  1. KLONOPIN [Suspect]
     Indication: DRUG USE FOR UNKNOWN INDICATION
     Route: 065
  2. KLONOPIN [Suspect]
     Dosage: STARTED IN JUNE; AT NIGHT
     Route: 065

REACTIONS (1)
  - COLITIS ULCERATIVE [None]
